FAERS Safety Report 19646545 (Version 2)
Quarter: 2021Q4

REPORT INFORMATION
  Report Type: Spontaneous
  Country: US (occurrence: US)
  Receive Date: 20210802
  Receipt Date: 20211118
  Transmission Date: 20220303
  Serious: Yes (Other)
  Sender: FDA-Public Use
  Company Number: US-MYLANLABS-2021M1045338

PATIENT
  Sex: Female
  Weight: 86 kg

DRUGS (2)
  1. CLONIDINE TRANSDERMAL SYSTEM [Suspect]
     Active Substance: CLONIDINE
     Indication: Cardiac disorder
     Dosage: 0.3 MILLIGRAM, QD (1 A WEEK EACH MONDAY)
     Route: 062
     Dates: end: 20210704
  2. CLONIDINE TRANSDERMAL SYSTEM [Suspect]
     Active Substance: CLONIDINE
     Indication: Cardiac failure congestive

REACTIONS (17)
  - Pulmonary oedema [Unknown]
  - Drug ineffective [Not Recovered/Not Resolved]
  - Swelling [Unknown]
  - Eye pruritus [Unknown]
  - Feeling abnormal [Unknown]
  - Unevaluable event [Unknown]
  - Dyspnoea [Unknown]
  - Cough [Unknown]
  - Application site erythema [Unknown]
  - Depression [Unknown]
  - Off label use [Unknown]
  - Fall [Unknown]
  - Asthenia [Recovered/Resolved]
  - Pain [Unknown]
  - Somnolence [Unknown]
  - Tremor [Unknown]
  - Weight increased [Unknown]
